FAERS Safety Report 15856571 (Version 8)
Quarter: 2019Q2

REPORT INFORMATION
  Report Type: Spontaneous
  Country: US (occurrence: US)
  Receive Date: 20190123
  Receipt Date: 20190508
  Transmission Date: 20190711
  Serious: Yes (Other)
  Sender: FDA-Public Use
  Company Number: PHEH2019US002950

PATIENT
  Sex: Female

DRUGS (3)
  1. LENVIMA [Suspect]
     Active Substance: LENVATINIB
     Indication: RENAL CANCER
     Dosage: 14 MG, QD
     Route: 048
  2. AFINITOR [Suspect]
     Active Substance: EVEROLIMUS
     Indication: RENAL CANCER
     Dosage: 5 MG, QD
     Route: 048
  3. LENVIMA [Suspect]
     Active Substance: LENVATINIB
     Dosage: 10 MG, QD
     Route: 048

REACTIONS (23)
  - Blood blister [Unknown]
  - Feeling abnormal [Unknown]
  - Haemorrhage [Unknown]
  - Kidney infection [Unknown]
  - Anaemia [Recovered/Resolved]
  - Furuncle [Recovered/Resolved]
  - Alopecia [Recovered/Resolved]
  - Skin disorder [Unknown]
  - Gait disturbance [Unknown]
  - Epistaxis [Unknown]
  - Nausea [Recovered/Resolved]
  - Coagulopathy [Unknown]
  - Haematuria [Unknown]
  - Burn oesophageal [Recovered/Resolved]
  - Blood glucose decreased [Unknown]
  - Neoplasm [Recovered/Resolved]
  - Blister [Unknown]
  - Central nervous system lesion [Unknown]
  - Pruritus [Unknown]
  - Drug ineffective [Unknown]
  - Diarrhoea [Unknown]
  - Eating disorder [Unknown]
  - Radiation injury [Unknown]
